FAERS Safety Report 8459805-2 (Version None)
Quarter: 2012Q2

REPORT INFORMATION
  Report Type: 
  Country: None (occurrence: None)
  Receive Date: 20120622
  Receipt Date: 20120613
  Transmission Date: 20120825
  Serious: Yes (Other)
  Sender: FDA-Public Use
  Company Number: PHHY2012SA051099

PATIENT
  Age: 8 Year
  Sex: Female

DRUGS (5)
  1. SANDOSTATIN [Suspect]
     Dosage: 2 UG/KG/H FOR 3 DAYS
  2. SANDOSTATIN [Suspect]
     Dosage: 2 PG/KG/H FOR 3 DAYS
  3. SANDOSTATIN [Suspect]
     Indication: GASTROINTESTINAL HAEMORRHAGE
     Dosage: 2 PG/KG
     Route: 040
  4. SANDOSTATIN [Suspect]
     Dosage: 1 UG/KG/HR
     Route: 065
  5. SANDOSTATIN [Suspect]
     Dosage: 4 UG/KG/H, FOR 2 DAYS

REACTIONS (8)
  - DRUG ADMINISTRATION ERROR [None]
  - ELECTROCARDIOGRAM QT PROLONGED [None]
  - NECROSIS [None]
  - GASTROINTESTINAL HAEMORRHAGE [None]
  - BRADYCARDIA [None]
  - INTESTINAL ULCER [None]
  - CAECITIS [None]
  - VENTRICULAR FIBRILLATION [None]
